FAERS Safety Report 6948182-1 (Version None)
Quarter: 2010Q3

REPORT INFORMATION
  Report Type: 
  Country: None (occurrence: None)
  Receive Date: 20100828
  Receipt Date: 20091021
  Transmission Date: 20110219
  Serious: No
  Sender: FDA-Public Use
  Company Number: US-ABBOTT-09P-163-0604696-00

PATIENT
  Sex: Male
  Weight: 113.5 kg

DRUGS (7)
  1. NIASPAN [Suspect]
     Indication: CORONARY ARTERY OCCLUSION
     Route: 048
     Dates: start: 20091001
  2. PLAVIX [Concomitant]
     Indication: CORONARY ARTERY OCCLUSION
     Route: 048
  3. LISINOPRIL [Concomitant]
     Indication: HYPERTENSION
     Route: 048
  4. SIMVASTATIN [Concomitant]
     Indication: BLOOD CHOLESTEROL
     Route: 048
  5. DICYCLOMINE [Concomitant]
     Indication: FLATULENCE
     Route: 048
     Dates: start: 20090901
  6. ASACOL HD [Concomitant]
     Indication: GASTRIC DISORDER
     Route: 048
     Dates: start: 20090901
  7. ASPIRIN [Concomitant]
     Indication: PROPHYLAXIS
     Route: 048
     Dates: start: 20091001

REACTIONS (3)
  - DIZZINESS [None]
  - FEELING HOT [None]
  - PARAESTHESIA [None]
